FAERS Safety Report 5612242-8 (Version None)
Quarter: 2008Q1

REPORT INFORMATION
  Report Type: 
  Country: None (occurrence: None)
  Receive Date: 20080204
  Receipt Date: 20080128
  Transmission Date: 20080703
  Serious: Yes (Other)
  Sender: FDA-Public Use
  Company Number: JO-GENENTECH-255052

PATIENT
  Age: 43 Year
  Sex: Male

DRUGS (3)
  1. XOLAIR [Suspect]
     Indication: ASTHMA
     Dosage: 3 DF, Q2W
     Route: 058
     Dates: start: 20070822, end: 20071122
  2. STEROIDS (UNK INGREDIENTS) [Concomitant]
     Indication: DRUG USE FOR UNKNOWN INDICATION
  3. BETA BLOCKER (UNK INGREDIENTS) [Concomitant]
     Indication: DRUG USE FOR UNKNOWN INDICATION

REACTIONS (5)
  - EYELID FUNCTION DISORDER [None]
  - HEADACHE [None]
  - HYPERTENSION [None]
  - OPTIC NEURITIS [None]
  - VISUAL ACUITY REDUCED [None]
